FAERS Safety Report 17926726 (Version 1)
Quarter: 2020Q2

REPORT INFORMATION
  Report Type: Report from Study
  Country: None (occurrence: CA)
  Receive Date: 20200623
  Receipt Date: 20200623
  Transmission Date: 20200714
  Serious: Yes (Other)
  Sender: FDA-Public Use
  Company Number: CA-ABBVIE-19K-028-2740097-00

PATIENT
  Age: 35 Year
  Sex: Female

DRUGS (4)
  1. HUMIRA [Suspect]
     Active Substance: ADALIMUMAB
     Route: 058
     Dates: end: 201901
  2. HUMIRA [Suspect]
     Active Substance: ADALIMUMAB
     Route: 058
     Dates: start: 2019
  3. HUMIRA [Suspect]
     Active Substance: ADALIMUMAB
     Indication: CROHN^S DISEASE
     Route: 058
     Dates: start: 20110325, end: 2013
  4. HUMIRA [Suspect]
     Active Substance: ADALIMUMAB
     Route: 058
     Dates: end: 2018

REACTIONS (9)
  - Large intestine perforation [Recovered/Resolved]
  - Small intestinal obstruction [Recovered/Resolved]
  - Herpes zoster [Recovered/Resolved]
  - Diarrhoea [Unknown]
  - Influenza [Recovered/Resolved]
  - Constipation [Recovered/Resolved]
  - Injection site pruritus [Not Recovered/Not Resolved]
  - Abdominal abscess [Recovered/Resolved]
  - Injection site dryness [Not Recovered/Not Resolved]

NARRATIVE: CASE EVENT DATE: 20121002
